FAERS Safety Report 25460306 (Version 4)
Quarter: 2025Q3

REPORT INFORMATION
  Report Type: Report from Study
  Country: US (occurrence: US)
  Receive Date: 20250620
  Receipt Date: 20250821
  Transmission Date: 20251020
  Serious: Yes (Other)
  Sender: IPSEN BIOPHARMACEUTICALS, INC.
  Company Number: US-IPSEN Group, Research and Development-2025-14376

PATIENT
  Age: 62 Year
  Sex: Female

DRUGS (3)
  1. ONIVYDE [Suspect]
     Active Substance: IRINOTECAN HYDROCHLORIDE
     Indication: Pancreatic carcinoma
     Dates: start: 20250213
  2. ONIVYDE [Suspect]
     Active Substance: IRINOTECAN HYDROCHLORIDE
     Dosage: REDUCED THE DOSE TO 90%
  3. ONIVYDE [Suspect]
     Active Substance: IRINOTECAN HYDROCHLORIDE

REACTIONS (36)
  - Thrombosis [Unknown]
  - Pulmonary embolism [Unknown]
  - Pulmonary embolism [Unknown]
  - Deep vein thrombosis [Unknown]
  - Intentional dose omission [Unknown]
  - Nausea [Unknown]
  - Vomiting [Unknown]
  - Diarrhoea [Unknown]
  - Dizziness [Unknown]
  - Angular cheilitis [Unknown]
  - Insomnia [Unknown]
  - Feeling abnormal [Unknown]
  - Product dose omission issue [Unknown]
  - Tongue discolouration [Unknown]
  - Skin discolouration [Unknown]
  - Nail discolouration [Unknown]
  - Abdominal discomfort [Unknown]
  - Frequent bowel movements [Unknown]
  - Malaise [Unknown]
  - Blood glucose abnormal [Unknown]
  - Blood pressure increased [Unknown]
  - Headache [Unknown]
  - Asthma [Unknown]
  - Hypersensitivity [Unknown]
  - Tongue discolouration [Unknown]
  - Skin discolouration [Unknown]
  - Taste disorder [Unknown]
  - Nausea [Unknown]
  - Vomiting [Unknown]
  - Diarrhoea [Unknown]
  - Abdominal pain [Unknown]
  - Gait disturbance [Unknown]
  - Dysstasia [Unknown]
  - Weight decreased [Unknown]
  - Somnolence [Unknown]
  - Gallbladder disorder [Unknown]

NARRATIVE: CASE EVENT DATE: 20250707
